FAERS Safety Report 8272289-2 (Version None)
Quarter: 2012Q2

REPORT INFORMATION
  Report Type: 
  Country: None (occurrence: None)
  Receive Date: 20120410
  Receipt Date: 20120326
  Transmission Date: 20120825
  Serious: Yes (Hospitalization, Other)
  Sender: FDA-Public Use
  Company Number: DK-WATSON-2012-05831

PATIENT
  Age: 1 Day

DRUGS (1)
  1. VALPROATE SODIUM [Suspect]
     Indication: FOETAL EXPOSURE DURING PREGNANCY
     Dosage: UNK
     Route: 064

REACTIONS (1)
  - CEREBELLAR HAEMORRHAGE [None]
